FAERS Safety Report 4660966-1 (Version None)
Quarter: 2005Q2

REPORT INFORMATION
  Report Type: 
  Country: None (occurrence: None)
  Receive Date: 20050511
  Receipt Date: 20050429
  Transmission Date: 20051028
  Serious: Yes (Life-Threatening, Hospitalization, Other)
  Sender: FDA-Public Use
  Company Number: KII-2005-0016466

PATIENT
  Age: 65 Year
  Sex: Female

DRUGS (10)
  1. HYDROMORPHONE HCL [Suspect]
     Dosage: ORAL
     Route: 048
  2. BUPROPION HCL [Suspect]
     Dosage: ORAL
     Route: 048
  3. CITALORPAM                 (CITALORPAM) [Suspect]
     Dosage: ORAL
     Route: 048
  4. TRAZODONE HCL [Suspect]
     Dosage: ORAL
     Route: 048
  5. NORVASC [Suspect]
     Dosage: ORAL
     Route: 048
  6. NEURONTIN [Suspect]
     Dosage: ORAL
     Route: 048
  7. PROPRANOLOL [Suspect]
     Dosage: ORAL
     Route: 048
  8. METHOCARBAMOL [Suspect]
     Dosage: ORAL
     Route: 048
  9. HERBAL PREPARATION [Suspect]
     Dosage: ORAL
     Route: 048
  10. BENZODIAZEPINE DERIVATIVES [Suspect]

REACTIONS (19)
  - ALANINE AMINOTRANSFERASE INCREASED [None]
  - ASPARTATE AMINOTRANSFERASE INCREASED [None]
  - BLOOD ALKALINE PHOSPHATASE INCREASED [None]
  - BLOOD CREATINE PHOSPHOKINASE INCREASED [None]
  - BLOOD CREATININE INCREASED [None]
  - BLOOD PH DECREASED [None]
  - BLOOD PRESSURE FLUCTUATION [None]
  - BLOOD UREA INCREASED [None]
  - BRADYCARDIA [None]
  - CARDIO-RESPIRATORY ARREST [None]
  - CONFUSIONAL STATE [None]
  - ELECTROMECHANICAL DISSOCIATION [None]
  - HAEMODYNAMIC INSTABILITY [None]
  - HYPOXIA [None]
  - LOSS OF CONSCIOUSNESS [None]
  - MYOCLONUS [None]
  - PNEUMONIA [None]
  - SINUS TACHYCARDIA [None]
  - VOMITING [None]
